FAERS Safety Report 5768704-6 (Version None)
Quarter: 2008Q2

REPORT INFORMATION
  Report Type: 
  Country: None (occurrence: None)
  Receive Date: 20080612
  Receipt Date: 20080516
  Transmission Date: 20081010
  Serious: No
  Sender: FDA-Public Use
  Company Number: US-BOEHRINGER INGELHEIM GMBH, GERMANY-2008-BP-07695BP

PATIENT
  Sex: Male

DRUGS (10)
  1. SPIRIVA [Suspect]
     Indication: CHRONIC OBSTRUCTIVE PULMONARY DISEASE
     Route: 055
     Dates: start: 20070301, end: 20080301
  2. ADVAIR DISKUS 100/50 [Suspect]
  3. ALBUTEROL [Concomitant]
  4. DUONEB [Concomitant]
  5. OXYCODEINE [Concomitant]
  6. DIAZAPAN [Concomitant]
  7. CLARITIN [Concomitant]
  8. SINGULAIR [Concomitant]
  9. PRILOSECK [Concomitant]
  10. NURITEN [Concomitant]

REACTIONS (1)
  - CANDIDIASIS [None]
